FAERS Safety Report 21761012 (Version 1)
Quarter: 2022Q4

REPORT INFORMATION
  Report Type: Report from Study
  Country: FR (occurrence: None)
  Receive Date: 20221221
  Receipt Date: 20221221
  Transmission Date: 20230113
  Serious: Yes (Death)
  Sender: FDA-Public Use
  Company Number: 2022A410495

PATIENT
  Age: 1045 Month
  Sex: Female
  Weight: 60 kg

DRUGS (1)
  1. EVUSHELD [Suspect]
     Active Substance: CILGAVIMAB\TIXAGEVIMAB
     Indication: COVID-19 prophylaxis
     Dosage: ONCE/SINGLE ADMINISTRATION
     Route: 030
     Dates: start: 20220718, end: 20220718

REACTIONS (1)
  - Exposure to SARS-CoV-2 [Fatal]

NARRATIVE: CASE EVENT DATE: 20221023
